FAERS Safety Report 22791252 (Version 3)
Quarter: 2024Q1

REPORT INFORMATION
  Report Type: Spontaneous
  Country: CA (occurrence: CA)
  Receive Date: 20230807
  Receipt Date: 20240301
  Transmission Date: 20240410
  Serious: Yes (Life-Threatening, Hospitalization, Other)
  Sender: FDA-Public Use
  Company Number: CA-BEH-2023161656

PATIENT
  Age: 55 Year
  Sex: Female

DRUGS (22)
  1. PRIVIGEN [Suspect]
     Active Substance: HUMAN IMMUNOGLOBULIN G
     Indication: Chronic allograft nephropathy
     Dosage: 20 GRAM
     Route: 042
     Dates: start: 20230118, end: 20230118
  2. PRIVIGEN [Suspect]
     Active Substance: HUMAN IMMUNOGLOBULIN G
     Dosage: 20 GRAM
     Route: 042
     Dates: start: 20230118, end: 20230118
  3. PRIVIGEN [Suspect]
     Active Substance: HUMAN IMMUNOGLOBULIN G
     Dosage: 5 GRAM
     Route: 042
     Dates: start: 20230118, end: 20230118
  4. VALSARTAN [Concomitant]
     Active Substance: VALSARTAN
  5. AMLODIPINE [Concomitant]
     Active Substance: AMLODIPINE BESYLATE
  6. MYCOPHENOLATE MOFETIL [Concomitant]
     Active Substance: MYCOPHENOLATE MOFETIL
     Indication: Prophylaxis against transplant rejection
  7. MYCOPHENOLATE MOFETIL [Concomitant]
     Active Substance: MYCOPHENOLATE MOFETIL
     Indication: Prophylaxis against transplant rejection
  8. TACRO [TACROLIMUS] [Concomitant]
     Indication: Prophylaxis against transplant rejection
  9. TACRO [TACROLIMUS] [Concomitant]
     Indication: Prophylaxis against transplant rejection
  10. PREDNISOLONE [Concomitant]
     Active Substance: PREDNISOLONE
     Indication: Prophylaxis against transplant rejection
  11. PREDNISOLONE [Concomitant]
     Active Substance: PREDNISOLONE
     Indication: Prophylaxis against transplant rejection
  12. FLUDROCORTISONE [Concomitant]
     Active Substance: FLUDROCORTISONE
  13. DAPSONE [Concomitant]
     Active Substance: DAPSONE
     Indication: Glucose-6-phosphate dehydrogenase deficiency
     Dosage: UNK
  14. MAGNESIUM [Concomitant]
     Active Substance: MAGNESIUM
  15. ERGOCALCIFEROL [Concomitant]
     Active Substance: ERGOCALCIFEROL
  16. ZOPICLONE [Concomitant]
     Active Substance: ZOPICLONE
  17. METHYLPREDNISOLONE [Concomitant]
     Active Substance: METHYLPREDNISOLONE
     Indication: Premedication
     Dosage: 40 MILLIGRAM
     Route: 042
     Dates: start: 20230118
  18. DIPHENHYDRAMINE [Concomitant]
     Active Substance: DIPHENHYDRAMINE
     Indication: Premedication
     Dosage: 25 MILLIGRAM
     Route: 048
     Dates: start: 20230118
  19. ACETAMINOPHEN [Concomitant]
     Active Substance: ACETAMINOPHEN
     Indication: Premedication
     Dosage: 500 MILLIGRAM
     Route: 048
     Dates: start: 20230118
  20. ACETAMINOPHEN [Concomitant]
     Active Substance: ACETAMINOPHEN
     Dosage: UNK
     Dates: start: 20230118
  21. FLORINEF ACETATE [Concomitant]
     Active Substance: FLUDROCORTISONE ACETATE
  22. PREDNISONE [Concomitant]
     Active Substance: PREDNISONE

REACTIONS (37)
  - Acute kidney injury [Unknown]
  - Anuria [Unknown]
  - Blood creatinine increased [Unknown]
  - Hyponatraemia [Unknown]
  - Proteinuria [Unknown]
  - Malaise [Unknown]
  - Presyncope [Recovered/Resolved with Sequelae]
  - Hyperhidrosis [Recovered/Resolved with Sequelae]
  - Dizziness [Recovered/Resolved with Sequelae]
  - Asthenia [Recovered/Resolved with Sequelae]
  - Flushing [Recovered/Resolved with Sequelae]
  - Chest pain [Unknown]
  - Pain [Recovered/Resolved with Sequelae]
  - Pyrexia [Unknown]
  - Leukocytosis [Recovering/Resolving]
  - Thrombocytopenia [Unknown]
  - Blood pressure increased [Recovering/Resolving]
  - Anaemia [Unknown]
  - Shock [Unknown]
  - Renal haematoma [Unknown]
  - Escherichia bacteraemia [Unknown]
  - Cytomegalovirus infection [Unknown]
  - Haemolysis [Unknown]
  - Reticulocytosis [Unknown]
  - Haptoglobin decreased [Unknown]
  - Serum ferritin increased [Unknown]
  - Polychromasia [Unknown]
  - Blood lactate dehydrogenase increased [Unknown]
  - Haemoglobin decreased [Unknown]
  - Gastritis [Unknown]
  - COVID-19 [Unknown]
  - Serum ferritin increased [Unknown]
  - Inflammation [Unknown]
  - Chronic allograft nephropathy [Unknown]
  - Thrombotic microangiopathy [Unknown]
  - No adverse event [Unknown]
  - Off label use [Unknown]

NARRATIVE: CASE EVENT DATE: 20230101
